FAERS Safety Report 9643724 (Version 1)
Quarter: 2013Q4

REPORT INFORMATION
  Report Type: Spontaneous
  Country: GR (occurrence: GR)
  Receive Date: 20131024
  Receipt Date: 20131024
  Transmission Date: 20140711
  Serious: Yes (Life-Threatening)
  Sender: FDA-Public Use
  Company Number: GR-ASTRAZENECA-2013SE77716

PATIENT
  Age: 39 Year
  Sex: Male

DRUGS (3)
  1. SEROQUEL XR [Suspect]
     Indication: SCHIZOPHRENIA
     Route: 048
     Dates: start: 201308
  2. AKINETON [Concomitant]
     Indication: SCHIZOPHRENIA
     Route: 048
  3. ALOPERIDIN [Concomitant]
     Indication: SCHIZOPHRENIA
     Route: 048

REACTIONS (2)
  - Pericarditis [Not Recovered/Not Resolved]
  - Off label use [Unknown]
